FAERS Safety Report 8001223-5 (Version None)
Quarter: 2011Q4

REPORT INFORMATION
  Report Type: 
  Country: None (occurrence: None)
  Receive Date: 20111222
  Receipt Date: 20111210
  Transmission Date: 20120403
  Serious: Yes (Death)
  Sender: FDA-Public Use
  Company Number: US-SANOFI-AVENTIS-2011SA079959

PATIENT
  Age: 31 Year
  Sex: Female
  Weight: 63.5 kg

DRUGS (5)
  1. LOVENOX [Suspect]
     Indication: PULMONARY EMBOLISM
     Route: 065
     Dates: start: 20090701, end: 20091212
  2. LOVENOX [Suspect]
     Route: 065
     Dates: start: 20091201, end: 20100111
  3. LOVENOX [Suspect]
     Route: 065
     Dates: start: 20091201, end: 20100111
  4. LOVENOX [Suspect]
     Route: 065
     Dates: start: 20090701, end: 20091212
  5. DROSPIRENONE AND ETHINYL ESTRADIOL [Suspect]

REACTIONS (5)
  - COAGULOPATHY [None]
  - DRUG INEFFECTIVE [None]
  - CEREBRAL VENOUS THROMBOSIS [None]
  - HEADACHE [None]
  - MATERNAL EXPOSURE DURING PREGNANCY [None]
